FAERS Safety Report 6896658-8 (Version None)
Quarter: 2010Q3

REPORT INFORMATION
  Report Type: 
  Country: None (occurrence: None)
  Receive Date: 20100802
  Receipt Date: 20070111
  Transmission Date: 20110219
  Serious: No
  Sender: FDA-Public Use
  Company Number: US-PFIZER INC-2007004394

PATIENT
  Sex: Female
  Weight: 58.51 kg

DRUGS (8)
  1. LYRICA [Suspect]
     Indication: PAIN
     Dates: start: 20070104
  2. LYRICA [Suspect]
     Indication: HERPES ZOSTER
  3. NORVASC [Suspect]
     Indication: HYPERTENSION
     Dates: start: 20070104
  4. ATENOLOL [Concomitant]
  5. SYNTHROID [Concomitant]
  6. HYDROCHLOROTHIAZIDE [Concomitant]
  7. FOLIC ACID [Concomitant]
  8. ACETYLSALICYLIC ACID SRT [Concomitant]

REACTIONS (1)
  - INCONTINENCE [None]
